FAERS Safety Report 7295513-1 (Version None)
Quarter: 2011Q1

REPORT INFORMATION
  Report Type: 
  Country: None (occurrence: None)
  Receive Date: 20110216
  Receipt Date: 20101201
  Transmission Date: 20110831
  Serious: No
  Sender: FDA-Public Use
  Company Number: US-ABBOTT-10P-163-0688846-00

PATIENT
  Sex: Male
  Weight: 83.99 kg

DRUGS (4)
  1. UNKNOWN MEDICATION [Concomitant]
     Indication: BLOOD PRESSURE
  2. ASPIRIN [Concomitant]
     Indication: PRODUCT USED FOR UNKNOWN INDICATION
  3. UNKNOWN MEDICATION [Concomitant]
     Indication: PRODUCT USED FOR UNKNOWN INDICATION
  4. SIMCOR [Suspect]
     Indication: LOW DENSITY LIPOPROTEIN INCREASED
     Dates: end: 20101129

REACTIONS (1)
  - DIZZINESS [None]
